FAERS Safety Report 8876499 (Version 1)
Quarter: 2012Q4

REPORT INFORMATION
  Report Type: 
  Country: US (occurrence: US)
  Receive Date: 20121030
  Receipt Date: 20121030
  Transmission Date: 20130627
  Serious: No
  Sender: FDA-Public Use
  Company Number: US-VERTEX PHARMACEUTICAL INC.-2012-023742

PATIENT
  Age: 49 Year
  Sex: Female

DRUGS (4)
  1. VX-950 [Suspect]
     Indication: HEPATITIS C
     Dosage: 750 mg, tid
     Route: 048
  2. PEGINTRON                          /01543001/ [Suspect]
     Indication: HEPATITIS C
     Dosage: 150 ?g, UNK
     Route: 058
  3. RIBAPAK [Suspect]
     Indication: HEPATITIS C
     Dosage: 600 mg, qd
     Route: 048
  4. VITAMIN B-12 [Concomitant]
     Dosage: 50 ?g, UNK
     Route: 048

REACTIONS (6)
  - Depression [Unknown]
  - Dissociation [Unknown]
  - Decreased appetite [Unknown]
  - Diarrhoea [Unknown]
  - Nausea [Unknown]
  - Anorectal discomfort [Unknown]
